FAERS Safety Report 16759992 (Version 1)
Quarter: 2019Q3

REPORT INFORMATION
  Report Type: Spontaneous
  Country: CA (occurrence: CA)
  Receive Date: 20190830
  Receipt Date: 20190830
  Transmission Date: 20191005
  Serious: Yes (Hospitalization)
  Sender: FDA-Public Use
  Company Number: CA-PFIZER INC-2019371443

PATIENT
  Age: 57 Year
  Sex: Female
  Weight: 70 kg

DRUGS (4)
  1. DETROL LA [Suspect]
     Active Substance: TOLTERODINE TARTRATE
     Indication: URINARY INCONTINENCE
     Dosage: 2.0 MG, UNK
     Route: 065
  2. MYLAN BUPROPION [Concomitant]
     Active Substance: BUPROPION
     Dosage: UNK
  3. APO ROSUVASTATIN [Concomitant]
     Active Substance: ROSUVASTATIN CALCIUM
     Dosage: UNK
  4. SANDOZ PANTOPRAZOL [Concomitant]
     Dosage: UNK

REACTIONS (8)
  - Dizziness [Unknown]
  - Heart rate increased [Unknown]
  - Chest discomfort [Unknown]
  - Gait disturbance [Unknown]
  - Presyncope [Unknown]
  - Chest pain [Unknown]
  - Throat tightness [Unknown]
  - Tremor [Unknown]
